FAERS Safety Report 24780306 (Version 1)
Quarter: 2024Q4

REPORT INFORMATION
  Report Type: Spontaneous
  Country: BR (occurrence: BR)
  Receive Date: 20241227
  Receipt Date: 20241227
  Transmission Date: 20250115
  Serious: Yes (Death)
  Sender: AUROBINDO
  Company Number: BR-AUROBINDO-AUR-APL-2024-063252

PATIENT
  Sex: Male

DRUGS (1)
  1. BELEODAQ [Suspect]
     Active Substance: BELINOSTAT
     Indication: Angioimmunoblastic T-cell lymphoma
     Dosage: 4 DOSAGE FORM, ONCE A DAY
     Route: 065

REACTIONS (2)
  - Lung disorder [Fatal]
  - Disease progression [Fatal]
